APPROVED DRUG PRODUCT: CHOLINE C-11
Active Ingredient: CHOLINE C-11
Strength: 4-33.1mCi/ML
Dosage Form/Route: INJECTABLE;INTRAVENOUS
Application: N203155 | Product #001 | TE Code: AP
Applicant: MAYO CLINIC PET RADIOCHEMISTRY FACILITY
Approved: Sep 12, 2012 | RLD: Yes | RS: Yes | Type: RX